FAERS Safety Report 5804013-4 (Version None)
Quarter: 2008Q3

REPORT INFORMATION
  Report Type: 
  Country: None (occurrence: None)
  Receive Date: 20080703
  Receipt Date: 20080619
  Transmission Date: 20090109
  Serious: Yes (Other)
  Sender: FDA-Public Use
  Company Number: 2008SP012404

PATIENT
  Sex: Female

DRUGS (4)
  1. AFRIN [Suspect]
     Indication: MULTIPLE ALLERGIES
     Dosage: NAS
     Route: 045
  2. TYLENOL ALLERGY SINUS /00446801/ [Concomitant]
  3. VICKS VAPOSTEAM LIQUID MEDICATION [Concomitant]
  4. ZYRTEC [Concomitant]

REACTIONS (4)
  - DRUG DEPENDENCE [None]
  - EYE INFECTION [None]
  - EYE PAIN [None]
  - INAPPROPRIATE SCHEDULE OF DRUG ADMINISTRATION [None]
